FAERS Safety Report 5064451-7 (Version None)
Quarter: 2006Q3

REPORT INFORMATION
  Report Type: 
  Country: None (occurrence: None)
  Receive Date: 20060726
  Receipt Date: 20060711
  Transmission Date: 20061208
  Serious: Yes (Other)
  Sender: FDA-Public Use
  Company Number: 2006S1000113

PATIENT
  Age: 22 Year
  Sex: Male

DRUGS (2)
  1. CUBICIN [Suspect]
     Dosage: 500 MG; Q24H; IV
     Route: 042
  2. CEFEPIME [Concomitant]

REACTIONS (2)
  - DYSARTHRIA [None]
  - PETIT MAL EPILEPSY [None]
